FAERS Safety Report 13281439 (Version 1)
Quarter: 2017Q1

REPORT INFORMATION
  Report Type: Spontaneous
  Country: US (occurrence: US)
  Receive Date: 20170228
  Receipt Date: 20170228
  Transmission Date: 20170428
  Serious: Yes (Other)
  Sender: FDA-Public Use
  Company Number: None

PATIENT
  Age: 0 Day
  Sex: Female

DRUGS (1)
  1. SOTALOL APOTEX [Suspect]
     Active Substance: SOTALOL
     Indication: ATRIAL FIBRILLATION
     Route: 048
     Dates: start: 20160706, end: 20170131

REACTIONS (5)
  - Dyspnoea [None]
  - Hyperhidrosis [None]
  - Chest pain [None]
  - Abdominal pain [None]
  - Blindness [None]

NARRATIVE: CASE EVENT DATE: 20170131
